FAERS Safety Report 13191314 (Version 3)
Quarter: 2017Q2

REPORT INFORMATION
  Report Type: Report from Study
  Country: GB (occurrence: GB)
  Receive Date: 20170207
  Receipt Date: 20170512
  Transmission Date: 20170830
  Serious: Yes (Hospitalization)
  Sender: FDA-Public Use
  Company Number: GB-ROCHE-1889637

PATIENT
  Sex: Female

DRUGS (11)
  1. TRAMADOL. [Concomitant]
     Active Substance: TRAMADOL
     Route: 065
  2. PARACETAMOL [Concomitant]
     Active Substance: ACETAMINOPHEN
     Dosage: 14 AS REQUIRED (PRN)
     Route: 065
  3. LEVOTHYROXIN [Concomitant]
     Active Substance: LEVOTHYROXINE
     Route: 065
  4. FLUTIFORM [Concomitant]
     Active Substance: FLUTICASONE PROPIONATE\FORMOTEROL FUMARATE
     Dosage: /5 INH
     Route: 065
  5. FLECAINIDE [Concomitant]
     Active Substance: FLECAINIDE
  6. PREDNISONE. [Concomitant]
     Active Substance: PREDNISONE
  7. SERETIDE [Concomitant]
     Active Substance: FLUTICASONE PROPIONATE\SALMETEROL XINAFOATE
  8. SALBUTAMOL [Concomitant]
     Active Substance: ALBUTEROL
  9. AMOXICILLIN. [Concomitant]
     Active Substance: AMOXICILLIN
  10. BISOPROLOL [Concomitant]
     Active Substance: BISOPROLOL
  11. RITUXIMAB [Suspect]
     Active Substance: RITUXIMAB
     Indication: RHEUMATOID ARTHRITIS
     Route: 065
     Dates: start: 20120209

REACTIONS (2)
  - Urinary tract infection [Recovered/Resolved]
  - Asthma [Recovered/Resolved]

NARRATIVE: CASE EVENT DATE: 20160418
